FAERS Safety Report 7434778-X (Version None)
Quarter: 2011Q2

REPORT INFORMATION
  Report Type: 
  Country: None (occurrence: None)
  Receive Date: 20110425
  Receipt Date: 20110321
  Transmission Date: 20111010
  Serious: Yes (Other)
  Sender: FDA-Public Use
  Company Number: US-BAYER-2010-001672

PATIENT
  Sex: Female
  Weight: 60 kg

DRUGS (7)
  1. ADVIL LIQUI-GELS [Concomitant]
     Dosage: UNK
     Dates: start: 20090101, end: 20100101
  2. CELEXA [Concomitant]
     Indication: DEPRESSION
     Dosage: UNK
     Dates: start: 20090701
  3. YAZ [Suspect]
     Indication: PRODUCT USED FOR UNKNOWN INDICATION
     Dosage: UNK
     Dates: start: 20020101, end: 20070101
  4. YASMIN [Suspect]
     Indication: PRODUCT USED FOR UNKNOWN INDICATION
  5. MULTI-VITAMINS [Concomitant]
     Dosage: UNK
     Dates: start: 20061101
  6. FOLIC ACID [Concomitant]
     Dosage: UNK
     Dates: start: 20061101
  7. MOTRIN [Concomitant]
     Dosage: UNK
     Dates: start: 20090101, end: 20100101

REACTIONS (2)
  - GALLBLADDER INJURY [None]
  - MENTAL DISORDER [None]
